FAERS Safety Report 13841018 (Version 1)
Quarter: 2017Q3

REPORT INFORMATION
  Report Type: Spontaneous
  Country: US (occurrence: US)
  Receive Date: 20170807
  Receipt Date: 20170807
  Transmission Date: 20171127
  Serious: Yes (Hospitalization, Other)
  Sender: FDA-Public Use
  Company Number: US-SA-2017SA140546

PATIENT

DRUGS (2)
  1. LEMTRADA [Suspect]
     Active Substance: ALEMTUZUMAB
     Route: 041
     Dates: start: 201508
  2. LEMTRADA [Suspect]
     Active Substance: ALEMTUZUMAB
     Route: 041
     Dates: start: 201607

REACTIONS (7)
  - Loss of consciousness [Not Recovered/Not Resolved]
  - Multiple sclerosis relapse [Unknown]
  - Chest pain [Not Recovered/Not Resolved]
  - Brain natriuretic peptide increased [Unknown]
  - Cardiac failure congestive [Unknown]
  - Ejection fraction decreased [Not Recovered/Not Resolved]
  - Dyspnoea [Not Recovered/Not Resolved]
